FAERS Safety Report 6647557-8 (Version None)
Quarter: 2010Q1

REPORT INFORMATION
  Report Type: 
  Country: None (occurrence: None)
  Receive Date: 20100323
  Receipt Date: 20100323
  Transmission Date: 20100710
  Serious: No
  Sender: FDA-Public Use
  Company Number: None

PATIENT
  Age: 83 Year
  Sex: Male
  Weight: 72.36 kg

DRUGS (1)
  1. LOSARTAN POTASSIUM [Suspect]
     Dosage: 25 MG ONCE
     Dates: start: 20090702, end: 20090702

REACTIONS (1)
  - HYPOTENSION [None]
